FAERS Safety Report 6409738-8 (Version None)
Quarter: 2009Q4

REPORT INFORMATION
  Report Type: 
  Country: None (occurrence: None)
  Receive Date: 20091022
  Receipt Date: 20091008
  Transmission Date: 20100525
  Serious: Yes (Other)
  Sender: FDA-Public Use
  Company Number: PHEH2009US11583

PATIENT
  Sex: Female
  Weight: 67.12 kg

DRUGS (1)
  1. EXJADE [Suspect]
     Dosage: 1250 MG DAILY
     Route: 048
     Dates: start: 20060414

REACTIONS (1)
  - BONE MARROW DISORDER [None]
